FAERS Safety Report 25538368 (Version 1)
Quarter: 2025Q3

REPORT INFORMATION
  Report Type: Spontaneous
  Country: US (occurrence: US)
  Receive Date: 20250710
  Receipt Date: 20250710
  Transmission Date: 20251020
  Serious: Yes (Hospitalization)
  Sender: MYLAN
  Company Number: US-MYLANLABS-2025M1056867

PATIENT
  Age: 51 Year
  Sex: Female
  Weight: 80.5 kg

DRUGS (20)
  1. ACETAZOLAMIDE [Suspect]
     Active Substance: ACETAZOLAMIDE
     Indication: Intracranial pressure increased
     Dosage: 250 MILLIGRAM, TID
  2. ACETAZOLAMIDE [Suspect]
     Active Substance: ACETAZOLAMIDE
     Indication: Hydrocephalus
     Dosage: 250 MILLIGRAM, TID
  3. ACETAZOLAMIDE [Suspect]
     Active Substance: ACETAZOLAMIDE
     Dosage: 250 MILLIGRAM, TID
     Route: 065
  4. ACETAZOLAMIDE [Suspect]
     Active Substance: ACETAZOLAMIDE
     Dosage: 250 MILLIGRAM, TID
     Route: 065
  5. ACETAZOLAMIDE [Suspect]
     Active Substance: ACETAZOLAMIDE
     Dosage: 500 MILLIGRAM, BID
  6. ACETAZOLAMIDE [Suspect]
     Active Substance: ACETAZOLAMIDE
     Dosage: 500 MILLIGRAM, BID
  7. ACETAZOLAMIDE [Suspect]
     Active Substance: ACETAZOLAMIDE
     Dosage: 500 MILLIGRAM, BID
     Route: 065
  8. ACETAZOLAMIDE [Suspect]
     Active Substance: ACETAZOLAMIDE
     Dosage: 500 MILLIGRAM, BID
     Route: 065
  9. DEXAMETHASONE SODIUM PHOSPHATE [Suspect]
     Active Substance: DEXAMETHASONE SODIUM PHOSPHATE
     Indication: Hydrocephalus
     Dosage: 12 MILLIGRAM, QD
  10. DEXAMETHASONE SODIUM PHOSPHATE [Suspect]
     Active Substance: DEXAMETHASONE SODIUM PHOSPHATE
     Indication: Intracranial pressure increased
     Dosage: 12 MILLIGRAM, QD
     Route: 042
  11. DEXAMETHASONE SODIUM PHOSPHATE [Suspect]
     Active Substance: DEXAMETHASONE SODIUM PHOSPHATE
     Dosage: 12 MILLIGRAM, QD
     Route: 042
  12. DEXAMETHASONE SODIUM PHOSPHATE [Suspect]
     Active Substance: DEXAMETHASONE SODIUM PHOSPHATE
     Dosage: 12 MILLIGRAM, QD
  13. ALBENDAZOLE [Concomitant]
     Active Substance: ALBENDAZOLE
     Indication: Neurocysticercosis
     Dosage: 600 MILLIGRAM, BID
  14. ALBENDAZOLE [Concomitant]
     Active Substance: ALBENDAZOLE
     Dosage: 600 MILLIGRAM, BID
     Route: 065
  15. ALBENDAZOLE [Concomitant]
     Active Substance: ALBENDAZOLE
     Dosage: 600 MILLIGRAM, BID
     Route: 065
  16. ALBENDAZOLE [Concomitant]
     Active Substance: ALBENDAZOLE
     Dosage: 600 MILLIGRAM, BID
  17. PRAZIQUANTEL [Concomitant]
     Active Substance: PRAZIQUANTEL
     Indication: Neurocysticercosis
     Dosage: 1350 MILLIGRAM, TID
  18. PRAZIQUANTEL [Concomitant]
     Active Substance: PRAZIQUANTEL
     Dosage: 1350 MILLIGRAM, TID
     Route: 065
  19. PRAZIQUANTEL [Concomitant]
     Active Substance: PRAZIQUANTEL
     Dosage: 1350 MILLIGRAM, TID
     Route: 065
  20. PRAZIQUANTEL [Concomitant]
     Active Substance: PRAZIQUANTEL
     Dosage: 1350 MILLIGRAM, TID

REACTIONS (2)
  - Hypokalaemia [Unknown]
  - Off label use [Unknown]
